FAERS Safety Report 17129592 (Version 1)
Quarter: 2019Q4

REPORT INFORMATION
  Report Type: Spontaneous
  Country: NL (occurrence: NL)
  Receive Date: 20191209
  Receipt Date: 20191209
  Transmission Date: 20200122
  Serious: Yes (Other)
  Sender: FDA-Public Use
  Company Number: NL-MYLANLABS-2019M1119638

PATIENT
  Age: 25 Year
  Sex: Female

DRUGS (1)
  1. SUMATRIPTAN. [Suspect]
     Active Substance: SUMATRIPTAN
     Indication: MIGRAINE WITH AURA
     Dosage: UNK UNK, PRN (WHEN NECESSARY)
     Route: 065

REACTIONS (7)
  - Susac^s syndrome [Unknown]
  - Deafness [Unknown]
  - Visual impairment [Unknown]
  - Retinal vein occlusion [Unknown]
  - Headache [Unknown]
  - Pleocytosis [Unknown]
  - Sensory loss [Unknown]
